FAERS Safety Report 9109609 (Version 1)
Quarter: 2013Q1

REPORT INFORMATION
  Report Type: Spontaneous
  Country: JP (occurrence: JP)
  Receive Date: 20130222
  Receipt Date: 20130222
  Transmission Date: 20140127
  Serious: Yes (Hospitalization)
  Sender: FDA-Public Use
  Company Number: PHHY2013JP017110

PATIENT
  Age: 53 Year
  Sex: Male

DRUGS (5)
  1. RIVASTIGMIN [Suspect]
     Indication: DEMENTIA ALZHEIMER^S TYPE
     Route: 062
  2. RIVASTIGMIN [Suspect]
     Dosage: 18 MG, / 24 HRS
     Route: 062
  3. RIVASTIGMIN [Suspect]
     Dosage: 4.5 MG, / 24 HRS
     Route: 062
  4. MEMANTINE [Concomitant]
  5. GALANTAMINE [Concomitant]

REACTIONS (5)
  - Coprolalia [Recovered/Resolved]
  - Persecutory delusion [Recovered/Resolved]
  - Aggression [Recovered/Resolved]
  - Posture abnormal [Recovered/Resolved]
  - Salivary hypersecretion [Recovered/Resolved]
